FAERS Safety Report 23915086 (Version 1)
Quarter: 2024Q2

REPORT INFORMATION
  Report Type: Spontaneous
  Country: US (occurrence: US)
  Receive Date: 20240529
  Receipt Date: 20240529
  Transmission Date: 20240716
  Serious: No
  Sender: FDA-Public Use
  Company Number: US-PERRIGO-24US002436

PATIENT

DRUGS (1)
  1. MINOXIDIL [Suspect]
     Active Substance: MINOXIDIL
     Indication: Product used for unknown indication
     Dosage: UNKNOWN, UNKNOWN
     Route: 061
     Dates: start: 20240304

REACTIONS (5)
  - Application site paraesthesia [Unknown]
  - Eyelids pruritus [Unknown]
  - Periorbital swelling [Unknown]
  - Application site pruritus [Unknown]
  - Application site pain [Unknown]

NARRATIVE: CASE EVENT DATE: 20240301
